FAERS Safety Report 16986268 (Version 3)
Quarter: 2019Q4

REPORT INFORMATION
  Report Type: Report from Study
  Country: FR (occurrence: FR)
  Receive Date: 20191101
  Receipt Date: 20191116
  Transmission Date: 20200122
  Serious: Yes (Hospitalization, Other)
  Sender: FDA-Public Use
  Company Number: NVSC2019FR008664

PATIENT
  Age: 43 Year
  Sex: Female
  Weight: 85 kg

DRUGS (35)
  1. ISCALIMAB [Suspect]
     Active Substance: ISCALIMAB
     Indication: RENAL TRANSPLANT
     Dosage: CODE NOT BROKEN
     Route: 058
     Dates: start: 20190502
  2. SOLUPRED [Concomitant]
     Dosage: UNK
     Route: 065
     Dates: start: 20190926, end: 20190928
  3. BICARBONATE SODIUM [Concomitant]
     Active Substance: SODIUM BICARBONATE
     Dosage: UNK
     Route: 065
     Dates: start: 20190922, end: 20190923
  4. ZOPICLONE [Concomitant]
     Active Substance: ZOPICLONE
     Dosage: UNK
     Route: 065
     Dates: start: 20190920, end: 20190923
  5. DEXERYL [Concomitant]
     Indication: GENERAL PHYSICAL CONDITION
     Dosage: UNK
     Route: 065
     Dates: start: 20190627
  6. ARANESP [Concomitant]
     Active Substance: DARBEPOETIN ALFA
     Indication: ANAEMIA
     Dosage: UNK
     Route: 065
     Dates: start: 20190924
  7. PARACETAMOL [Concomitant]
     Active Substance: ACETAMINOPHEN
     Indication: PYREXIA
     Dosage: UNK
     Route: 065
     Dates: start: 20190919, end: 20190920
  8. SOLUPRED [Concomitant]
     Dosage: UNK
     Route: 065
     Dates: start: 20191002, end: 20191011
  9. ZOPICLONE [Concomitant]
     Active Substance: ZOPICLONE
     Indication: GENERAL PHYSICAL CONDITION
     Dosage: UNK
     Route: 065
     Dates: start: 20190906, end: 20190918
  10. PROGRAF [Concomitant]
     Active Substance: TACROLIMUS
     Indication: TRANSPLANT REJECTION
     Dosage: UNK
     Route: 065
     Dates: start: 20191009, end: 20191009
  11. INEXIUM [Concomitant]
     Active Substance: ESOMEPRAZOLE
     Indication: PROPHYLAXIS
     Dosage: UNK
     Route: 065
     Dates: start: 20190524
  12. ZOPICLONE [Concomitant]
     Active Substance: ZOPICLONE
     Dosage: UNK
     Route: 065
  13. PENTACARINAT [Concomitant]
     Active Substance: PENTAMIDINE ISETHIONATE
     Indication: PROPHYLAXIS
     Dosage: UNK
     Route: 065
     Dates: start: 20190923, end: 20190923
  14. ACIDE FOLIQUE [Concomitant]
     Active Substance: FOLIC ACID
     Dosage: UNK
     Route: 065
     Dates: start: 20191009
  15. SOLUPRED [Concomitant]
     Dosage: UNK
     Route: 065
     Dates: start: 20190920, end: 20190922
  16. BICARBONATE SODIUM [Concomitant]
     Active Substance: SODIUM BICARBONATE
     Dosage: UNK
     Route: 065
     Dates: start: 20190924, end: 20190924
  17. SPASFON [Concomitant]
     Indication: GENERAL PHYSICAL CONDITION
     Dosage: UNK
     Route: 065
     Dates: start: 20190920, end: 20190922
  18. TACROLIMUS. [Suspect]
     Active Substance: TACROLIMUS
     Indication: PRODUCT USED FOR UNKNOWN INDICATION
     Dosage: UNK
     Route: 048
     Dates: start: 20190502
  19. SOLUPRED [Concomitant]
     Dosage: UNK
     Route: 065
     Dates: start: 20190914, end: 20190916
  20. SOLUPRED [Concomitant]
     Dosage: UNK
     Route: 065
     Dates: start: 20190917, end: 20190919
  21. SOLUPRED [Concomitant]
     Dosage: UNK
     Route: 065
     Dates: start: 20190923, end: 20190925
  22. SOLUPRED [Concomitant]
     Dosage: UNK
     Route: 065
     Dates: start: 20190929, end: 20191001
  23. BICARBONATE SODIUM [Concomitant]
     Active Substance: SODIUM BICARBONATE
     Indication: GENERAL PHYSICAL CONDITION
     Dosage: UNK
     Route: 065
     Dates: start: 20190830, end: 20190918
  24. UVEDOSE [Concomitant]
     Active Substance: CHOLECALCIFEROL
     Indication: VITAMIN D DEFICIENCY
     Dosage: UNK
     Route: 065
     Dates: start: 20190307
  25. ACIDE FOLIQUE [Concomitant]
     Active Substance: FOLIC ACID
     Indication: GENERAL PHYSICAL CONDITION
     Dosage: UNK
     Route: 065
     Dates: start: 20190921, end: 20190923
  26. SOLUPRED [Concomitant]
     Indication: PROPHYLAXIS
     Dosage: UNK
     Route: 065
     Dates: start: 20190911, end: 20190913
  27. ZOPICLONE [Concomitant]
     Active Substance: ZOPICLONE
     Dosage: UNK
     Route: 065
     Dates: start: 20191009, end: 20191013
  28. LUTERAN [Concomitant]
     Active Substance: CHLORMADINONE ACETATE
     Indication: UTERINE LEIOMYOMA
     Dosage: UNK
     Route: 065
     Dates: start: 20190822
  29. ROVALCYTE [Concomitant]
     Active Substance: VALGANCICLOVIR HYDROCHLORIDE
     Indication: PROPHYLAXIS
     Dosage: UNK
     Route: 065
     Dates: start: 20190919
  30. BACTRIM [Concomitant]
     Active Substance: SULFAMETHOXAZOLE\TRIMETHOPRIM
     Indication: PROPHYLAXIS
     Dosage: UNK
     Route: 065
     Dates: start: 20190919
  31. BICARBONATE SODIUM [Concomitant]
     Active Substance: SODIUM BICARBONATE
     Dosage: UNK
     Route: 065
     Dates: start: 20190921, end: 20190921
  32. BICARBONATE SODIUM [Concomitant]
     Active Substance: SODIUM BICARBONATE
     Dosage: UNK
     Route: 065
     Dates: start: 20191009, end: 20191009
  33. DOLIPRAN [Concomitant]
     Indication: PAIN
     Dosage: UNK
     Route: 065
     Dates: start: 20190201
  34. MYCOPHENOLATE MOFETIL. [Suspect]
     Active Substance: MYCOPHENOLATE MOFETIL
     Indication: PRODUCT USED FOR UNKNOWN INDICATION
     Dosage: 250 MG, BID
     Route: 048
     Dates: start: 20190502
  35. CELLCEPT [Concomitant]
     Active Substance: MYCOPHENOLATE MOFETIL\MYCOPHENOLATE MOFETIL HYDROCHLORIDE
     Indication: PROPHYLAXIS
     Dosage: UNK
     Route: 065
     Dates: start: 20191009, end: 20191009

REACTIONS (3)
  - Pyrexia [Not Recovered/Not Resolved]
  - Headache [Not Recovered/Not Resolved]
  - Myalgia [Not Recovered/Not Resolved]

NARRATIVE: CASE EVENT DATE: 20191004
